FAERS Safety Report 23903857 (Version 1)
Quarter: 2024Q2

REPORT INFORMATION
  Report Type: Spontaneous
  Country: US (occurrence: US)
  Receive Date: 20240527
  Receipt Date: 20240527
  Transmission Date: 20240716
  Serious: Yes (Other)
  Sender: FDA-Public Use
  Company Number: US-862174955-ML2024-03066

PATIENT
  Age: 63 Year
  Sex: Male

DRUGS (1)
  1. ISOPROTERENOL HYDROCHLORIDE [Suspect]
     Active Substance: ISOPROTERENOL HYDROCHLORIDE
     Indication: Electrocardiogram QT prolonged
     Route: 042

REACTIONS (2)
  - Electrocardiogram QT prolonged [Unknown]
  - Rebound effect [Unknown]
